FAERS Safety Report 12319151 (Version 1)
Quarter: 2016Q2

REPORT INFORMATION
  Report Type: Spontaneous
  Country: US (occurrence: US)
  Receive Date: 20160429
  Receipt Date: 20160429
  Transmission Date: 20160815
  Serious: Yes (Hospitalization)
  Sender: FDA-Public Use
  Company Number: US-SA-2016SA084238

PATIENT
  Age: 5 Year
  Sex: Male
  Weight: 19.64 kg

DRUGS (5)
  1. IRON [Concomitant]
     Active Substance: IRON
     Dosage: AS DIRECTED
     Dates: start: 20150330
  2. LUMIZYME [Suspect]
     Active Substance: ALGLUCOSIDASE ALFA
     Indication: GLYCOGEN STORAGE DISORDER
     Route: 042
  3. PULMICORT TURBUHALER [Concomitant]
     Active Substance: BUDESONIDE
     Dosage: AS DIRECTED
     Dates: start: 20150330
  4. TOBRAMYCIN. [Concomitant]
     Active Substance: TOBRAMYCIN
     Dosage: AS DIRECTED
     Dates: start: 20150330
  5. XOPENEX [Concomitant]
     Active Substance: LEVALBUTEROL HYDROCHLORIDE
     Dosage: AS DIRECTED
     Dates: start: 20150330

REACTIONS (1)
  - Gastrointestinal disorder [Unknown]
